FAERS Safety Report 14727595 (Version 1)
Quarter: 2018Q2

REPORT INFORMATION
  Report Type: Spontaneous
  Country: DE (occurrence: DE)
  Receive Date: 20180406
  Receipt Date: 20180406
  Transmission Date: 20180711
  Serious: Yes (Hospitalization, Other)
  Sender: FDA-Public Use
  Company Number: DE-BAXTER-2018BAX010644

PATIENT
  Sex: Male

DRUGS (13)
  1. PREDNISOLONE. [Suspect]
     Active Substance: PREDNISOLONE
     Indication: B-CELL LYMPHOMA
     Route: 048
     Dates: start: 20160203
  2. PREDNISOLONE. [Suspect]
     Active Substance: PREDNISOLONE
     Dosage: ON 10/MAR/2016, RECEIVED THE MOST RECENT CYCLE OF CHOP PRIOR TO SAE (5 IN 14 D)
     Route: 048
     Dates: start: 20160310
  3. ENDOXAN 1G [Suspect]
     Active Substance: CYCLOPHOSPHAMIDE
     Indication: B-CELL LYMPHOMA
     Dosage: UNK, Q2WK, DOSE: 1 (UNITS NOT REPORTED)
     Route: 042
     Dates: start: 20160203
  4. ENDOXAN 1G [Suspect]
     Active Substance: CYCLOPHOSPHAMIDE
     Dosage: (ON 10/MAR/2016, RECEIVED THE MOST RECENT CYCLE OF CHOP PRIOR TO SAE (1 IN 14 D))
     Route: 042
     Dates: start: 20160310
  5. PEGFILGRASTIM [Suspect]
     Active Substance: PEGFILGRASTIM
     Indication: B-CELL LYMPHOMA
     Dosage: 6 MG (1 IN 14 D)
     Route: 058
     Dates: start: 20160206
  6. LEUCOVORIN. [Suspect]
     Active Substance: LEUCOVORIN
     Indication: B-CELL LYMPHOMA
     Dosage: 280 MG, QID (30 MG/250 ML, 4 TIMES IN DAY)
     Route: 042
     Dates: start: 20160114
  7. METHOTREXATE SODIUM. [Suspect]
     Active Substance: METHOTREXATE SODIUM
     Indication: B-CELL LYMPHOMA
     Dosage: 1.5 G, QD (50% DOSE REDUCTION DUE TO GFR INITIAL 58 ML/MIN)
     Route: 042
     Dates: start: 20160112, end: 20160112
  8. RITUXIMAB. [Suspect]
     Active Substance: RITUXIMAB
     Dosage: MOST RECENT CYCLE NO 3, THE DATE OF MOST RECENT DOSE OF RITUXIMAB 09/MAR/2016
     Route: 042
     Dates: start: 20160309
  9. DOXORUBICINE [Suspect]
     Active Substance: DOXORUBICIN
     Dosage: (ON 10/MAR/2016, RECEIVED THE MOST RECENT CYCLE OF CHOP PRIOR TO SAE (1 IN 14 D))
     Route: 042
     Dates: start: 20160310
  10. VINCRISTINE [Suspect]
     Active Substance: VINCRISTINE
     Indication: B-CELL LYMPHOMA
     Dosage: 3.91 MG, Q2WK
     Route: 042
     Dates: start: 20160203
  11. RITUXIMAB. [Suspect]
     Active Substance: RITUXIMAB
     Indication: B-CELL LYMPHOMA
     Dosage: ON 14 DAY
     Route: 042
     Dates: start: 20160125
  12. DOXORUBICINE [Suspect]
     Active Substance: DOXORUBICIN
     Indication: B-CELL LYMPHOMA
     Dosage: UNK, Q2WK, DOSE: 1 (UNITS NOT REPORTED)
     Route: 042
     Dates: start: 20160203
  13. LEUCOVORIN. [Suspect]
     Active Substance: LEUCOVORIN
     Dosage: ON 10/MAR/2016, (250 MG, 1 IN 1 D) (MOST RECENT DOSE PRIOR TO SAE )
     Route: 042
     Dates: start: 20160310

REACTIONS (2)
  - Pneumonia [Recovered/Resolved]
  - Urinary tract obstruction [Recovered/Resolved]

NARRATIVE: CASE EVENT DATE: 20160323
